FAERS Safety Report 11695269 (Version 2)
Quarter: 2015Q4

REPORT INFORMATION
  Report Type: Report from Study
  Country: NL (occurrence: NL)
  Receive Date: 20151103
  Receipt Date: 20151106
  Transmission Date: 20160304
  Serious: Yes (Death, Hospitalization, Other)
  Sender: FDA-Public Use
  Company Number: NL-AMGEN-NLDSL2015114198

PATIENT
  Age: 70 Year
  Sex: Male

DRUGS (14)
  1. TAMSULOSINE RANBAXY [Concomitant]
     Dosage: 0.4 MG, QD
     Dates: start: 20130916, end: 20150808
  2. XGEVA [Suspect]
     Active Substance: DENOSUMAB
     Indication: METASTASES TO BONE
     Dosage: 120 MG, Q4WK
     Route: 058
     Dates: start: 20140703
  3. NIFEDIPINE SANDOZ [Concomitant]
     Active Substance: NIFEDIPINE
     Dosage: 60 MG, QD
     Route: 048
     Dates: start: 20150511
  4. GOSERELINE [Concomitant]
     Active Substance: GOSERELIN
     Dosage: 10.8 MG, UNK
     Dates: start: 20130404
  5. SPIRONOLACTON [Concomitant]
     Active Substance: SPIRONOLACTONE
     Dosage: 100 MG, QD
     Route: 048
     Dates: start: 20150511, end: 20150808
  6. METFORMINE [Concomitant]
     Active Substance: METFORMIN HYDROCHLORIDE
     Dosage: 500 MG, QD
     Route: 048
     Dates: start: 20150511, end: 20150808
  7. ESOMEPRAZOL SANDOZ                 /01479302/ [Concomitant]
     Dosage: 40 MG, QD
     Dates: start: 20150507
  8. BETAMETHASONE. [Concomitant]
     Active Substance: BETAMETHASONE
     Dosage: 0.5 MG/G, QD
     Dates: start: 20150508, end: 20150805
  9. TOLBUTAMIDE. [Concomitant]
     Active Substance: TOLBUTAMIDE
     Dosage: 500 MG, QD
     Route: 048
     Dates: start: 20150511, end: 20150808
  10. CHLORAMPHENICOL [Concomitant]
     Active Substance: CHLORAMPHENICOL
     Dosage: 5 MG/ML, QD
     Dates: start: 20150703, end: 20150930
  11. ATORVASTATINE MYLAN [Concomitant]
     Active Substance: ATORVASTATIN
     Dosage: 40 MG, QD
     Dates: start: 20080422
  12. LOSARTANKALIUM MYLAN [Concomitant]
     Dosage: 100 MG, UNK
     Dates: start: 20110920
  13. CALCIUMCARBONAAT [Concomitant]
     Dosage: 500 MG (1.25G),QD
     Dates: start: 20150511
  14. FUROSEMIDE. [Concomitant]
     Active Substance: FUROSEMIDE
     Dosage: 40 MG, QD
     Route: 048
     Dates: start: 20150511, end: 20150808

REACTIONS (8)
  - Prostate cancer metastatic [Unknown]
  - Somnolence [Unknown]
  - Cervicobrachial syndrome [Unknown]
  - Restlessness [Unknown]
  - Death [Fatal]
  - Confusional state [Unknown]
  - Urinary retention [Unknown]
  - Headache [Unknown]

NARRATIVE: CASE EVENT DATE: 20140711
